FAERS Safety Report 22285458 (Version 1)
Quarter: 2023Q2

REPORT INFORMATION
  Report Type: Spontaneous
  Country: US (occurrence: US)
  Receive Date: 20230504
  Receipt Date: 20230504
  Transmission Date: 20230721
  Serious: No
  Sender: FDA-Public Use
  Company Number: US-BRISTOL-MYERS SQUIBB COMPANY-2023-062099

PATIENT
  Age: 82 Year
  Sex: Male
  Weight: 83.91 kg

DRUGS (2)
  1. ELIQUIS [Suspect]
     Active Substance: APIXABAN
     Indication: Cerebrovascular accident prophylaxis
     Route: 048
     Dates: start: 2023
  2. ELIQUIS [Suspect]
     Active Substance: APIXABAN

REACTIONS (5)
  - Diarrhoea [Unknown]
  - Gastric disorder [Unknown]
  - Rectal tenesmus [Unknown]
  - Pruritus [Unknown]
  - Treatment noncompliance [Unknown]

NARRATIVE: CASE EVENT DATE: 20230301
